FAERS Safety Report 5719663-3 (Version None)
Quarter: 2008Q2

REPORT INFORMATION
  Report Type: 
  Country: None (occurrence: None)
  Receive Date: 20080425
  Receipt Date: 20080425
  Transmission Date: 20081010
  Serious: Yes (Hospitalization)
  Sender: FDA-Public Use
  Company Number: None

PATIENT
  Age: 68 Year
  Sex: Female

DRUGS (2)
  1. CARBOPLATIN [Suspect]
     Indication: LUNG NEOPLASM MALIGNANT
     Dosage: 180 MG ONCE IV
     Route: 042
     Dates: start: 20080109, end: 20080409
  2. DOCETAXEL [Suspect]
     Indication: LUNG NEOPLASM MALIGNANT
     Dosage: 30 MG ONCE IV
     Route: 042
     Dates: start: 20080109, end: 20080109

REACTIONS (2)
  - ANAEMIA [None]
  - LEUKOPENIA [None]
